FAERS Safety Report 9979135 (Version 1)
Quarter: 2014Q1

REPORT INFORMATION
  Report Type: Report from Study
  Country: US (occurrence: US)
  Receive Date: 20140306
  Receipt Date: 20140306
  Transmission Date: 20141002
  Serious: No
  Sender: FDA-Public Use
  Company Number: US-ABBVIE-13P-163-1169248-00

PATIENT
  Age: 47 Year
  Sex: Female

DRUGS (1)
  1. HUMIRA [Suspect]
     Indication: CROHN^S DISEASE
     Route: 058
     Dates: start: 201004

REACTIONS (6)
  - Lip swelling [Unknown]
  - Psoriasis [Unknown]
  - Eye infection [Recovered/Resolved]
  - Rash [Unknown]
  - Rash [Unknown]
  - Ear infection [Recovered/Resolved]
